FAERS Safety Report 16187612 (Version 3)
Quarter: 2019Q2

REPORT INFORMATION
  Report Type: Spontaneous
  Country: US (occurrence: US)
  Receive Date: 20190412
  Receipt Date: 20190514
  Transmission Date: 20190711
  Serious: Yes (Hospitalization)
  Sender: FDA-Public Use
  Company Number: US-SHIRE-US201912044

PATIENT
  Sex: Male

DRUGS (1)
  1. ELAPRASE [Suspect]
     Active Substance: IDURSULFASE
     Indication: MUCOPOLYSACCHARIDOSIS II
     Dosage: 5 VIALS, 1X/WEEK
     Route: 042
     Dates: start: 20091106

REACTIONS (3)
  - Upper respiratory tract infection [Recovering/Resolving]
  - Dyspnoea [Unknown]
  - Cough [Unknown]
